FAERS Safety Report 24846159 (Version 2)
Quarter: 2025Q1

REPORT INFORMATION
  Report Type: Spontaneous
  Country: US (occurrence: US)
  Receive Date: 20250115
  Receipt Date: 20250319
  Transmission Date: 20250409
  Serious: No
  Sender: SANOFI AVENTIS
  Company Number: US-SA-2025SA011025

PATIENT
  Sex: Female
  Weight: 47.73 kg

DRUGS (17)
  1. DUPIXENT [Suspect]
     Active Substance: DUPILUMAB
     Indication: Dermatitis atopic
     Dosage: 300 MG, QOW
     Route: 058
  2. LYSINE [Concomitant]
     Active Substance: LYSINE
  3. SALINE [Concomitant]
     Active Substance: SODIUM CHLORIDE
  4. RETAINE MGD [Concomitant]
     Active Substance: LIGHT MINERAL OIL\MINERAL OIL
  5. CORTISONE [Concomitant]
     Active Substance: CORTISONE
  6. VEVYE [Concomitant]
     Active Substance: CYCLOSPORINE
  7. AZELASTINE HYDROCHLORIDE [Concomitant]
     Active Substance: AZELASTINE HYDROCHLORIDE
  8. HYALURONIC ACID [ASCORBIC ACID;HYALURONIC ACID] [Concomitant]
  9. ALBUTEROL SULFATE [Concomitant]
     Active Substance: ALBUTEROL SULFATE
  10. FAMOTIDINE [Concomitant]
     Active Substance: FAMOTIDINE
  11. ZYRTEC [Concomitant]
     Active Substance: CETIRIZINE HYDROCHLORIDE
  12. ZINC [Concomitant]
     Active Substance: ZINC
  13. VITAMIN D3 [Concomitant]
     Active Substance: CHOLECALCIFEROL
  14. FERROUS BISGLYCINATE [Concomitant]
     Active Substance: FERROUS BISGLYCINATE
  15. VITAMIN E [Concomitant]
     Active Substance: .ALPHA.-TOCOPHEROL
  16. Magnesium bisglycinate [Concomitant]
  17. LEVOMEFOLATE CALCIUM [Concomitant]
     Active Substance: LEVOMEFOLATE CALCIUM

REACTIONS (12)
  - Sinus congestion [Unknown]
  - Bone pain [Unknown]
  - Eosinophilic oesophagitis [Unknown]
  - Lethargy [Unknown]
  - Anaemia [Unknown]
  - Migraine [Unknown]
  - Nasopharyngitis [Unknown]
  - Swelling of eyelid [Unknown]
  - Arthralgia [Unknown]
  - Dry eye [Unknown]
  - Eye pruritus [Unknown]
  - Sleep disorder due to general medical condition, insomnia type [Unknown]
